FAERS Safety Report 23343267 (Version 3)
Quarter: 2024Q1

REPORT INFORMATION
  Report Type: Report from Study
  Country: CA (occurrence: CA)
  Receive Date: 20231227
  Receipt Date: 20240221
  Transmission Date: 20240410
  Serious: Yes (Death, Hospitalization)
  Sender: FDA-Public Use
  Company Number: CA-TAIHOP-2023-009380

PATIENT
  Age: 64 Year
  Sex: Male

DRUGS (2)
  1. LONSURF [Suspect]
     Active Substance: TIPIRACIL HYDROCHLORIDE\TRIFLURIDINE
     Indication: Colorectal cancer metastatic
     Dosage: CYCLE 1 STARTED 26/OCT/2023; CURRENT CYCLE UNKNOWN; FORM STRENGTH UNKNOWN
     Route: 048
     Dates: start: 20231026
  2. BEVACIZUMAB [Concomitant]
     Active Substance: BEVACIZUMAB
     Indication: Product used for unknown indication
     Route: 042
     Dates: start: 20231108

REACTIONS (5)
  - Death [Fatal]
  - Pneumonia [Recovering/Resolving]
  - Lung disorder [Recovering/Resolving]
  - Nausea [Unknown]
  - Abdominal pain upper [Recovered/Resolved]

NARRATIVE: CASE EVENT DATE: 20240212
